FAERS Safety Report 10861103 (Version 2)
Quarter: 2015Q2

REPORT INFORMATION
  Report Type: Spontaneous
  Country: US (occurrence: US)
  Receive Date: 20150223
  Receipt Date: 20150409
  Transmission Date: 20150821
  Serious: Yes (Other)
  Sender: FDA-Public Use
  Company Number: US-PFIZER INC-2015057662

PATIENT
  Age: 98 Year
  Sex: Female

DRUGS (1)
  1. LATANOPROST. [Suspect]
     Active Substance: LATANOPROST
     Dosage: 1 DROP DAILY AT BEDTIME IN EACH EYE
     Route: 047

REACTIONS (3)
  - Eye irritation [Unknown]
  - Macular degeneration [Unknown]
  - Visual impairment [Unknown]
